FAERS Safety Report 12167540 (Version 1)
Quarter: 2016Q1

REPORT INFORMATION
  Report Type: Spontaneous
  Country: US (occurrence: US)
  Receive Date: 20160310
  Receipt Date: 20160310
  Transmission Date: 20160526
  Serious: No
  Sender: FDA-Public Use
  Company Number: US-GLAXOSMITHKLINE-US2016GSK032154

PATIENT
  Age: 24 Year
  Sex: Male
  Weight: 86.17 kg

DRUGS (9)
  1. NICOTINE. [Suspect]
     Active Substance: NICOTINE
     Indication: PRODUCT USED FOR UNKNOWN INDICATION
     Dosage: 1 PACK PER DAY OF E-CIGARETTES
  2. LEXAPRO [Suspect]
     Active Substance: ESCITALOPRAM OXALATE
     Indication: DEPRESSION
     Dosage: 40 MG 1D AT NIGHT
     Dates: start: 201403
  3. VIAGRA [Suspect]
     Active Substance: SILDENAFIL CITRATE
     Indication: ERECTILE DYSFUNCTION
     Dosage: 1 TABLET ONCE BY MOUTH AT NIGHT
     Route: 048
     Dates: start: 20160221
  4. VIAGRA [Suspect]
     Active Substance: SILDENAFIL CITRATE
     Indication: ERECTILE DYSFUNCTION
  5. RISPERDAL [Suspect]
     Active Substance: RISPERIDONE
     Indication: BIPOLAR II DISORDER
     Dosage: 0.5 MG, 1D ORALLY
     Route: 048
  6. LITHIUM. [Suspect]
     Active Substance: LITHIUM
     Indication: DEPRESSION
  7. LITHIUM. [Suspect]
     Active Substance: LITHIUM
     Indication: BIPOLAR II DISORDER
     Dosage: 30 MG, 1D
     Route: 048
     Dates: start: 201512
  8. LAMICTAL [Suspect]
     Active Substance: LAMOTRIGINE
     Indication: BIPOLAR II DISORDER
     Dosage: TWO 200 MG TABLETS ONCE DAILY BY MOUTH
     Route: 048
  9. LATUDA [Suspect]
     Active Substance: LURASIDONE HYDROCHLORIDE
     Indication: BIPOLAR II DISORDER
     Dosage: 120 MG TABLET 1D ORALLY
     Route: 048

REACTIONS (7)
  - Disturbance in sexual arousal [Not Recovered/Not Resolved]
  - Loss of libido [Unknown]
  - Condition aggravated [Not Recovered/Not Resolved]
  - Erectile dysfunction [Not Recovered/Not Resolved]
  - Prescription drug used without a prescription [Unknown]
  - Ejaculation disorder [Recovering/Resolving]
  - Erection increased [Recovered/Resolved with Sequelae]

NARRATIVE: CASE EVENT DATE: 20160221
